FAERS Safety Report 9288768 (Version 1)
Quarter: 2013Q2

REPORT INFORMATION
  Report Type: Spontaneous
  Country: US (occurrence: US)
  Receive Date: 20130508
  Receipt Date: 20130508
  Transmission Date: 20140414
  Serious: Yes (Other)
  Sender: FDA-Public Use
  Company Number: US-RB-053137-13

PATIENT
  Age: 55 Year
  Sex: Female

DRUGS (5)
  1. SUBOXONE TABLET [Suspect]
     Indication: DRUG DEPENDENCE
     Route: 060
     Dates: start: 20130411, end: 20130417
  2. SUBOXONE TABLET [Suspect]
     Dosage: TAKING 2-8 MG DAILY
     Route: 060
     Dates: start: 20130418
  3. PLAVIX [Concomitant]
     Indication: COAGULOPATHY
     Dosage: DAILY, DOSING DETAILS UNKNOWN
     Route: 048
  4. LOPRESSOR [Concomitant]
     Indication: HYPERTENSION
     Dosage: DAILY, DOSING DETAILS UNKNOWN
     Route: 048
  5. ZOLOFT [Concomitant]
     Indication: DEPRESSION
     Dosage: DAILY, DOSING DETAILS UNKNOWN
     Route: 048

REACTIONS (6)
  - Wrong technique in drug usage process [Not Recovered/Not Resolved]
  - Convulsion [Not Recovered/Not Resolved]
  - Aphasia [Not Recovered/Not Resolved]
  - Eye movement disorder [Not Recovered/Not Resolved]
  - Muscle twitching [Not Recovered/Not Resolved]
  - Underdose [Not Recovered/Not Resolved]
